FAERS Safety Report 11744184 (Version 2)
Quarter: 2015Q4

REPORT INFORMATION
  Report Type: Report from Study
  Country: US (occurrence: US)
  Receive Date: 20151116
  Receipt Date: 20151124
  Transmission Date: 20160304
  Serious: Yes (Hospitalization)
  Sender: FDA-Public Use
  Company Number: US-TARO-2015TAR01060

PATIENT
  Age: 70 Year
  Sex: Male
  Weight: 81.63 kg

DRUGS (11)
  1. BLINDED PLACEBO [Suspect]
     Active Substance: INVESTIGATIONAL PRODUCT
     Indication: ACTINIC KERATOSIS
     Dosage: 250 MG, 3X/WEEK
     Route: 061
     Dates: start: 20150911
  2. DOCUSATE SODIUM. [Concomitant]
     Active Substance: DOCUSATE SODIUM
     Indication: PROPHYLAXIS
     Dosage: 100 MG, 2X/DAY
     Route: 048
     Dates: start: 2015
  3. MEDROL [Concomitant]
     Active Substance: METHYLPREDNISOLONE
  4. GABAPENTIN. [Concomitant]
     Active Substance: GABAPENTIN
     Indication: SCIATIC NERVE INJURY
     Dosage: 300 MG, 2X/DAY
     Route: 048
     Dates: start: 2012
  5. NORCO [Concomitant]
     Active Substance: ACETAMINOPHEN\HYDROCODONE BITARTRATE
     Route: 048
  6. BLINDED IMIQUIMOD CREAM 5% (BA/BE) [Suspect]
     Active Substance: IMIQUIMOD
     Indication: ACTINIC KERATOSIS
     Dosage: 250 MG, 3X/WEEK
     Route: 061
     Dates: start: 20150911
  7. PRAVASTATIN [Concomitant]
     Active Substance: PRAVASTATIN\PRAVASTATIN SODIUM
     Indication: HYPERCHOLESTEROLAEMIA
     Dosage: 20 MG, 1X/DAY
     Route: 048
     Dates: start: 2014
  8. MULTIVITAMIN [Concomitant]
     Active Substance: VITAMINS
     Indication: VITAMIN SUPPLEMENTATION
     Dosage: 1 TABLETS, 1X/DAY
     Route: 048
     Dates: start: 2013
  9. BENADRYL [Concomitant]
     Active Substance: DIPHENHYDRAMINE HYDROCHLORIDE
     Indication: RHINITIS ALLERGIC
     Dosage: 50 MG, AS NEEDED
     Route: 048
     Dates: start: 2015
  10. ALDARA [Suspect]
     Active Substance: IMIQUIMOD
     Indication: ACTINIC KERATOSIS
     Dosage: 250 MG, 3X/WEEK
     Route: 061
     Dates: start: 20150911
  11. NAPROXEN. [Concomitant]
     Active Substance: NAPROXEN
     Indication: ANALGESIC THERAPY
     Dosage: 250 MG, 2X/DAY
     Route: 048
     Dates: start: 2015

REACTIONS (4)
  - Sciatica [Recovered/Resolved]
  - Radiculopathy [Recovered/Resolved]
  - Intervertebral disc protrusion [Recovered/Resolved]
  - Pain [Recovered/Resolved]

NARRATIVE: CASE EVENT DATE: 201509
